FAERS Safety Report 8902359 (Version 2)
Quarter: 2012Q4

REPORT INFORMATION
  Report Type: 
  Country: JP (occurrence: JP)
  Receive Date: 20121112
  Receipt Date: 20121127
  Transmission Date: 20130627
  Serious: Yes (Other)
  Sender: FDA-Public Use
  Company Number: JP-ASTELLAS-2012JP010571

PATIENT
  Age: 57 Year
  Sex: Male
  Weight: 46.5 kg

DRUGS (16)
  1. FUNGUARD [Suspect]
     Indication: ASPERGILLOSIS
     Dosage: 300 mg, UID/QD
     Route: 041
     Dates: start: 20120508, end: 20120520
  2. GASTER [Suspect]
     Indication: HAEMORRHAGE PROPHYLAXIS
     Dosage: 20 mg, bid
     Route: 065
     Dates: start: 20120428, end: 20120528
  3. VFEND [Suspect]
     Indication: ASPERGILLOSIS
     Dosage: 300 mg, bid
     Route: 065
     Dates: start: 20120505, end: 20120506
  4. VFEND [Suspect]
     Dosage: 200 mg, bid
     Route: 065
     Dates: start: 20120506, end: 20120530
  5. PREDONINE                          /00016203/ [Concomitant]
     Indication: INFLAMMATION
     Dosage: 20 mg, UID/QD
     Route: 065
     Dates: start: 20120426, end: 20120426
  6. PREDONINE                          /00016203/ [Concomitant]
     Dosage: 100 mg, UID/QD
     Route: 065
     Dates: start: 20120430, end: 20120502
  7. PREDONINE                          /00016203/ [Concomitant]
     Dosage: 60 mg, UID/QD
     Route: 065
     Dates: start: 20120503, end: 20120503
  8. PREDONINE                          /00016203/ [Concomitant]
     Dosage: 30 mg, UID/QD
     Route: 065
     Dates: start: 20120504, end: 20120504
  9. PREDONINE                          /00016203/ [Concomitant]
     Dosage: 10 mg, UID/QD
     Route: 065
     Dates: start: 20120505, end: 20120507
  10. ZOVIRAX                            /00587301/ [Concomitant]
     Indication: MENINGITIS VIRAL
     Dosage: 500 mg, bid
     Route: 065
     Dates: start: 20120427, end: 20120427
  11. MEROPEN                            /01250501/ [Concomitant]
     Indication: MENINGITIS BACTERIAL
     Dosage: 2 g, tid
     Route: 065
     Dates: start: 20120427, end: 20120505
  12. MEROPEN                            /01250501/ [Concomitant]
     Dosage: 0.5 g, tid
     Route: 065
     Dates: start: 20120506, end: 20120507
  13. VANCOMYCIN HYDROCHLORIDE [Concomitant]
     Indication: MENINGITIS BACTERIAL
     Dosage: 0.5 g, qid
     Route: 065
     Dates: start: 20120427, end: 20120501
  14. AMBISOME [Concomitant]
     Indication: FUNGAL INFECTION
     Dosage: 250 mg, UID/QD
     Route: 065
     Dates: start: 20120427, end: 20120505
  15. PRIDOL [Concomitant]
     Indication: INFLAMMATION
     Dosage: 1000 mg, UID/QD
     Route: 065
     Dates: start: 20120427, end: 20120429
  16. CEFTRIAXONE SODIUM [Concomitant]
     Indication: BACTERIAL INFECTION
     Dosage: 2 g, bid
     Route: 065
     Dates: start: 20120508, end: 20120515

REACTIONS (3)
  - Drug ineffective [Unknown]
  - Aspergillosis [Unknown]
  - Hepatic function abnormal [Recovered/Resolved]
